FAERS Safety Report 15231482 (Version 3)
Quarter: 2019Q3

REPORT INFORMATION
  Report Type: Spontaneous
  Country: JP (occurrence: JP)
  Receive Date: 20180802
  Receipt Date: 20190719
  Transmission Date: 20191004
  Serious: Yes (Hospitalization)
  Sender: FDA-Public Use
  Company Number: JP-ACTELION-A-CH2017-163913

PATIENT
  Age: 45 Year
  Sex: Female

DRUGS (45)
  1. PREDONINE [Concomitant]
     Active Substance: PREDNISOLONE
     Dosage: 25 MG, QD
     Dates: start: 20180309
  2. VOLIBRIS [Concomitant]
     Active Substance: AMBRISENTAN
  3. UPTRAVI [Suspect]
     Active Substance: SELEXIPAG
     Dosage: 1.0 MG, BID
     Route: 048
     Dates: start: 20170305, end: 20170322
  4. FUROSEMIDE. [Suspect]
     Active Substance: FUROSEMIDE
     Indication: HYPERTENSION
     Dosage: 20 MG, QD
     Route: 048
     Dates: start: 20150424
  5. ADEMPAS [Suspect]
     Active Substance: RIOCIGUAT
     Dosage: 2.5 MG, TID
     Route: 048
     Dates: start: 20171215, end: 20180405
  6. WARFARIN [Suspect]
     Active Substance: WARFARIN
     Dosage: 4.25 MG, QD
     Route: 048
     Dates: start: 20170305, end: 20170307
  7. WARFARIN [Suspect]
     Active Substance: WARFARIN
     Dosage: 4.25 MG, QD
     Route: 048
     Dates: start: 20170323, end: 20170614
  8. PREDONINE [Concomitant]
     Active Substance: PREDNISOLONE
     Indication: RADIATION PNEUMONITIS
     Dosage: 2.5 MG, QD
     Dates: end: 20170207
  9. FAMOTIDINE. [Concomitant]
     Active Substance: FAMOTIDINE
     Indication: GASTROOESOPHAGEAL REFLUX DISEASE
     Dosage: 10 MG, QD
     Dates: end: 20171214
  10. OPSUMIT [Suspect]
     Active Substance: MACITENTAN
     Indication: PULMONARY ARTERIAL HYPERTENSION
     Dosage: 10 MG, QD
     Route: 048
     Dates: start: 20161220
  11. WARFARIN [Suspect]
     Active Substance: WARFARIN
     Indication: THROMBOSIS PROPHYLAXIS
     Dosage: 4.75 MG, QD
     Route: 048
     Dates: start: 20150513, end: 20170304
  12. WARFARIN [Suspect]
     Active Substance: WARFARIN
     Dosage: 4.0 MG, QD
     Route: 048
     Dates: start: 20170309, end: 20170322
  13. BAKTAR [Concomitant]
     Active Substance: SULFAMETHOXAZOLE\TRIMETHOPRIM
     Dosage: 1 DF, QD
  14. BERASUS [Concomitant]
     Active Substance: BERAPROST SODIUM
     Indication: PULMONARY ARTERIAL HYPERTENSION
     Dosage: 120 MCG, QD
     Dates: end: 20170206
  15. PREDONINE [Concomitant]
     Active Substance: PREDNISOLONE
     Indication: CONCOMITANT DISEASE AGGRAVATED
     Dosage: 1 MG, QD
     Dates: start: 20170208, end: 20170308
  16. SLOW K [Concomitant]
     Active Substance: POTASSIUM CHLORIDE
  17. REVATIO [Concomitant]
     Active Substance: SILDENAFIL CITRATE
  18. UPTRAVI [Suspect]
     Active Substance: SELEXIPAG
     Dosage: 0.4 MG, BID
     Route: 048
     Dates: start: 20170202, end: 20170206
  19. UPTRAVI [Suspect]
     Active Substance: SELEXIPAG
     Dosage: 0.8 MG, BID
     Route: 048
     Dates: start: 20170210, end: 20170213
  20. EPOPROSTENOL ACT [Suspect]
     Active Substance: EPOPROSTENOL
     Indication: PULMONARY HYPERTENSION
     Dosage: 10-20 NG/KG, PER MIN
     Route: 042
     Dates: start: 20171219
  21. PREDONINE [Concomitant]
     Active Substance: PREDNISOLONE
     Dosage: 4.0 MG, QD
     Dates: start: 20170518, end: 20170614
  22. PREDONINE [Concomitant]
     Active Substance: PREDNISOLONE
     Dosage: 20 MG, QD
     Dates: start: 20180326
  23. ETIZOLAM [Concomitant]
     Active Substance: ETIZOLAM
     Indication: INSOMNIA
     Dosage: 1 MG, QD
     Dates: end: 20170510
  24. UPTRAVI [Suspect]
     Active Substance: SELEXIPAG
     Dosage: 1.4 MG, BID
     Route: 048
     Dates: start: 20170427, end: 20170510
  25. EPOPROSTENOL ACT [Suspect]
     Active Substance: EPOPROSTENOL
     Dosage: 20-65.5 NG/KG, PER MIN
     Route: 042
  26. MAGNESIUM OXIDE. [Suspect]
     Active Substance: MAGNESIUM OXIDE
     Indication: CONSTIPATION
     Dosage: 330 MG, PRN
     Route: 048
     Dates: start: 20160623
  27. NEXIUM [Concomitant]
     Active Substance: ESOMEPRAZOLE MAGNESIUM
     Indication: GASTROOESOPHAGEAL REFLUX DISEASE
     Dosage: 20 MG, QD
  28. BONALON [Concomitant]
     Active Substance: ALENDRONATE SODIUM
     Dosage: 35 MG, QD
  29. ADCIRCA [Concomitant]
     Active Substance: TADALAFIL
  30. UPTRAVI [Suspect]
     Active Substance: SELEXIPAG
     Indication: PULMONARY ARTERIAL HYPERTENSION
     Dosage: 0.2 MG, BID
     Route: 048
     Dates: start: 20170130, end: 20170202
  31. UPTRAVI [Suspect]
     Active Substance: SELEXIPAG
     Dosage: 1.6 MG, BID
     Route: 048
     Dates: start: 20170511, end: 20171206
  32. WARFARIN [Suspect]
     Active Substance: WARFARIN
     Dosage: 4.0 MG, QD
     Route: 048
     Dates: start: 20170615, end: 20170712
  33. WARFARIN [Suspect]
     Active Substance: WARFARIN
     Dosage: 3.5 MG, QD
     Route: 048
     Dates: start: 20170713, end: 20171214
  34. UPTRAVI [Suspect]
     Active Substance: SELEXIPAG
     Dosage: 0.6 MG, BID
     Route: 048
     Dates: start: 20170207, end: 20170209
  35. UPTRAVI [Suspect]
     Active Substance: SELEXIPAG
     Dosage: 1.2 MG, BID
     Route: 048
     Dates: start: 20170221, end: 20170304
  36. PREDONINE [Concomitant]
     Active Substance: PREDNISOLONE
     Dosage: 4.5 MG, QD
     Dates: start: 20170420, end: 20170517
  37. PREDONINE [Concomitant]
     Active Substance: PREDNISOLONE
     Dosage: 3.5 MG, QD
     Dates: start: 20170615
  38. ZOMIG [Concomitant]
     Active Substance: ZOLMITRIPTAN
     Indication: MIGRAINE
     Dosage: 2.5 MG, QD
     Dates: end: 20170219
  39. REBAMIPIDE [Concomitant]
     Active Substance: REBAMIPIDE
  40. UPTRAVI [Suspect]
     Active Substance: SELEXIPAG
     Dosage: 1.0 MG, QD
     Route: 048
     Dates: start: 20170214, end: 20170220
  41. UPTRAVI [Suspect]
     Active Substance: SELEXIPAG
     Dosage: 1.2 MG, BID
     Route: 048
     Dates: start: 20170323, end: 20170426
  42. ADEMPAS [Suspect]
     Active Substance: RIOCIGUAT
     Indication: PULMONARY ARTERIAL HYPERTENSION
     Dosage: 2.5 MG, TID
     Route: 048
     Dates: start: 20150618, end: 20171214
  43. MAGNESIUM OXIDE. [Suspect]
     Active Substance: MAGNESIUM OXIDE
     Dosage: 330 MG, TID
     Route: 048
     Dates: end: 20171214
  44. WARFARIN [Suspect]
     Active Substance: WARFARIN
     Dosage: 4.5 MG, QD
     Route: 048
     Dates: start: 20170308, end: 20170308
  45. PREDONINE [Concomitant]
     Active Substance: PREDNISOLONE
     Dosage: 5 MG, QD
     Dates: end: 20170419

REACTIONS (26)
  - Bronchitis [Recovering/Resolving]
  - Upper respiratory tract inflammation [Recovered/Resolved]
  - Influenza [Recovered/Resolved]
  - Pain in extremity [Recovered/Resolved]
  - Pain in jaw [Not Recovered/Not Resolved]
  - Malaise [Recovering/Resolving]
  - Brain natriuretic peptide increased [Not Recovered/Not Resolved]
  - Headache [Not Recovered/Not Resolved]
  - Iron deficiency anaemia [Recovered/Resolved]
  - Radiation pneumonitis [Recovering/Resolving]
  - Hot flush [Recovered/Resolved]
  - Nausea [Recovered/Resolved]
  - Oedema [Not Recovered/Not Resolved]
  - Purpura [Recovered/Resolved]
  - Erythema [Recovering/Resolving]
  - Cough [Recovering/Resolving]
  - Vertigo [Recovered/Resolved]
  - Hepatic function abnormal [Recovered/Resolved]
  - Alanine aminotransferase increased [Recovered/Resolved]
  - Pulmonary hypertension [Recovering/Resolving]
  - Hypotension [Not Recovered/Not Resolved]
  - Concomitant disease aggravated [Recovering/Resolving]
  - Diarrhoea [Recovered/Resolved]
  - Blood pressure decreased [Recovered/Resolved]
  - Aspartate aminotransferase increased [Recovered/Resolved]
  - Uterine haemorrhage [Recovered/Resolved]

NARRATIVE: CASE EVENT DATE: 20170107
